FAERS Safety Report 18300276 (Version 1)
Quarter: 2020Q3

REPORT INFORMATION
  Report Type: Spontaneous
  Country: US (occurrence: US)
  Receive Date: 20200922
  Receipt Date: 20200922
  Transmission Date: 20201103
  Serious: No
  Sender: FDA-Public Use
  Company Number: None

PATIENT
  Age: 42 Year
  Sex: Male

DRUGS (3)
  1. SILDENAFIL TAB 20MG [Suspect]
     Active Substance: SILDENAFIL
     Indication: PULMONARY ARTERIAL HYPERTENSION
     Route: 048
     Dates: start: 201911
  2. AMBRISENTAN [Suspect]
     Active Substance: AMBRISENTAN
  3. METFORMIN [Suspect]
     Active Substance: METFORMIN HYDROCHLORIDE

REACTIONS (7)
  - Nausea [None]
  - Decreased appetite [None]
  - Insomnia [None]
  - Swelling [None]
  - Dyspnoea [None]
  - Bone pain [None]
  - Renal disorder [None]

NARRATIVE: CASE EVENT DATE: 20200911
